FAERS Safety Report 12974376 (Version 1)
Quarter: 2016Q4

REPORT INFORMATION
  Report Type: Spontaneous
  Country: GB (occurrence: GB)
  Receive Date: 20161125
  Receipt Date: 20161125
  Transmission Date: 20170207
  Serious: Yes (Other)
  Sender: FDA-Public Use
  Company Number: GB-ROCHE-1857805

PATIENT
  Age: 47 Year
  Sex: Female

DRUGS (2)
  1. DOCETAXEL. [Concomitant]
     Active Substance: DOCETAXEL
  2. HERCEPTIN [Suspect]
     Active Substance: TRASTUZUMAB
     Indication: PRODUCT USED FOR UNKNOWN INDICATION
     Route: 065

REACTIONS (9)
  - Arthralgia [Unknown]
  - Alopecia [Unknown]
  - Menopausal symptoms [Unknown]
  - Fatigue [Unknown]
  - Metastases to lymph nodes [Unknown]
  - Metastases to pelvis [Unknown]
  - Cough [Unknown]
  - Metastases to spine [Unknown]
  - Pain [Unknown]
